FAERS Safety Report 10765005 (Version 5)
Quarter: 2019Q1

REPORT INFORMATION
  Report Type: Spontaneous
  Country: US (occurrence: US)
  Receive Date: 20150205
  Receipt Date: 20190306
  Transmission Date: 20190417
  Serious: No
  Sender: FDA-Public Use
  Company Number: US-PFIZER INC-2015045767

PATIENT
  Age: 61 Year
  Sex: Female
  Weight: 89.8 kg

DRUGS (7)
  1. FLEXERIL [Concomitant]
     Active Substance: CYCLOBENZAPRINE HYDROCHLORIDE
     Dosage: UNK
     Dates: start: 2008
  2. LYRICA [Suspect]
     Active Substance: PREGABALIN
     Indication: FIBROMYALGIA
     Dosage: 150MG IN THE MORNING AND 225MG IN THE AFTERNOON
     Dates: start: 2008
  3. HUMIRA [Concomitant]
     Active Substance: ADALIMUMAB
     Dosage: UNK
     Dates: start: 2008
  4. LEFLUNOMIDE. [Concomitant]
     Active Substance: LEFLUNOMIDE
     Dosage: UNK
     Dates: start: 2008
  5. LYRICA [Suspect]
     Active Substance: PREGABALIN
     Dosage: 75 MG, UNK (75 MG ONLY TAKING 3 TO 4 A DAY)
  6. FLUOXETINE [Concomitant]
     Active Substance: FLUOXETINE HYDROCHLORIDE
     Dosage: UNK
     Dates: start: 2008
  7. LYRICA [Suspect]
     Active Substance: PREGABALIN
     Dosage: 75MG, CAPSULES 2 CAPSULES IN MORNING AND 2 AT NIGHT
     Route: 048

REACTIONS (7)
  - Diarrhoea [Unknown]
  - Psychomotor hyperactivity [Unknown]
  - Paranoia [Unknown]
  - Insomnia [Unknown]
  - Withdrawal syndrome [Recovered/Resolved]
  - Intentional product use issue [Unknown]
  - Pain [Unknown]

NARRATIVE: CASE EVENT DATE: 20150128
